FAERS Safety Report 6368924-6 (Version None)
Quarter: 2009Q3

REPORT INFORMATION
  Report Type: 
  Country: None (occurrence: None)
  Receive Date: 20090918
  Receipt Date: 20090918
  Transmission Date: 20100115
  Serious: Yes (Other)
  Sender: FDA-Public Use
  Company Number: None

PATIENT
  Sex: Female
  Weight: 63.5036 kg

DRUGS (1)
  1. BONIVA [Suspect]
     Indication: OSTEOPOROSIS
     Dosage: 150 MG. ONCE A MONTH

REACTIONS (4)
  - ARTHRALGIA [None]
  - BONE PAIN [None]
  - DISCOMFORT [None]
  - GAIT DISTURBANCE [None]
